FAERS Safety Report 6929763-8 (Version None)
Quarter: 2010Q3

REPORT INFORMATION
  Report Type: 
  Country: None (occurrence: None)
  Receive Date: 20100818
  Receipt Date: 20100806
  Transmission Date: 20110219
  Serious: Yes (Other)
  Sender: FDA-Public Use
  Company Number: RU-RANBAXY-2010R3-36772

PATIENT

DRUGS (6)
  1. SERTRALINE HYDROCHLORIDE [Suspect]
     Indication: CANCER PAIN
     Dosage: HALF TABLET ONCE DAILY
     Route: 048
     Dates: start: 20100710
  2. ARIMIDEX [Concomitant]
     Indication: BREAST CANCER
     Dosage: UNK
     Route: 065
     Dates: start: 20060101
  3. SEHYDRIN [Concomitant]
     Indication: CANCER PAIN
     Dosage: 1 TABLET PER DAY
     Route: 065
     Dates: start: 20100703, end: 20100803
  4. KETONAL [Concomitant]
     Indication: NEURITIS
     Dosage: UNK
     Route: 065
     Dates: start: 20100803
  5. TRAMADOL [Concomitant]
     Indication: NEURITIS
     Dosage: UNK
     Route: 065
     Dates: start: 20100803
  6. MILGAMMA [Concomitant]
     Indication: NEURITIS
     Dosage: UNK
     Route: 065
     Dates: start: 20100803

REACTIONS (3)
  - INSOMNIA [None]
  - MEDICATION ERROR [None]
  - NEURITIS [None]
